FAERS Safety Report 11189573 (Version 1)
Quarter: 2015Q2

REPORT INFORMATION
  Report Type: Spontaneous
  Country: IT (occurrence: IT)
  Receive Date: 20150615
  Receipt Date: 20150615
  Transmission Date: 20150821
  Serious: Yes (Hospitalization)
  Sender: FDA-Public Use
  Company Number: IT-JNJFOC-20150610095

PATIENT
  Age: 84 Year
  Sex: Female

DRUGS (17)
  1. XARELTO [Suspect]
     Active Substance: RIVAROXABAN
     Indication: ATRIAL FIBRILLATION
     Route: 048
     Dates: start: 20140904, end: 20150519
  2. OPTOVIT (TOCOPHEROL) [Concomitant]
     Indication: DRY EYE
  3. CIPRALEX [Concomitant]
     Active Substance: ESCITALOPRAM OXALATE
     Indication: DEPRESSION
     Route: 048
  4. IPERTEN [Concomitant]
     Active Substance: MANIDIPINE
     Indication: HYPERTENSION
     Route: 048
  5. SINVACOR [Concomitant]
     Active Substance: SIMVASTATIN
     Indication: HYPERCHOLESTEROLAEMIA
     Route: 048
  6. BIOTIN CARIN [Concomitant]
     Indication: AMNESIA
  7. XARELTO [Suspect]
     Active Substance: RIVAROXABAN
     Indication: CEREBROVASCULAR ACCIDENT PROPHYLAXIS
     Route: 048
     Dates: start: 20140904, end: 20150519
  8. PANTORC [Concomitant]
     Active Substance: PANTOPRAZOLE SODIUM
     Indication: ABDOMINAL PAIN UPPER
     Route: 048
  9. DILATREND [Concomitant]
     Active Substance: CARVEDILOL
     Indication: HYPERTENSION
  10. BIOTIN CARIN [Concomitant]
     Indication: COGNITIVE DISORDER
  11. BIOTIN CARIN [Concomitant]
     Indication: IRRITABILITY
  12. COAPROVEL [Concomitant]
     Active Substance: HYDROCHLOROTHIAZIDE\IRBESARTAN
     Indication: HYPERTENSION
     Route: 048
  13. DITROPAN [Concomitant]
     Active Substance: OXYBUTYNIN CHLORIDE
     Indication: URINARY INCONTINENCE
     Route: 048
  14. BAMBUTEROL [Concomitant]
     Active Substance: BAMBUTEROL
     Indication: CAPILLARY DISORDER
  15. ARVENUM [Concomitant]
     Indication: PERIPHERAL VENOUS DISEASE
     Route: 048
  16. BIOTIN CARIN [Concomitant]
     Indication: DEPRESSION
  17. BIOTIN CARIN [Concomitant]
     Indication: NUTRITIONAL SUPPLEMENTATION

REACTIONS (1)
  - Cerebral ischaemia [Not Recovered/Not Resolved]

NARRATIVE: CASE EVENT DATE: 20150519
